FAERS Safety Report 4893718-8 (Version None)
Quarter: 2006Q1

REPORT INFORMATION
  Report Type: 
  Country: None (occurrence: None)
  Receive Date: 20060127
  Receipt Date: 20051124
  Transmission Date: 20060701
  Serious: Yes (Life-Threatening)
  Sender: FDA-Public Use
  Company Number: 423398

PATIENT
  Age: 58 Year
  Sex: Male

DRUGS (7)
  1. ARTIST [Suspect]
     Indication: HYPERTENSION
     Dosage: 10MG TWICE PER DAY
     Route: 048
     Dates: start: 20051018, end: 20051031
  2. PERDIPINE [Suspect]
     Indication: HYPERTENSION
     Route: 042
     Dates: start: 20051017, end: 20051031
  3. AMLODIN [Suspect]
     Indication: HYPERTENSION
     Dosage: 5MG TWICE PER DAY
     Route: 048
     Dates: start: 20051017, end: 20051031
  4. ADALAT [Suspect]
     Indication: HYPERTENSION
     Dosage: 20MG THREE TIMES PER DAY
     Route: 048
     Dates: start: 20051018, end: 20051031
  5. CALSLOT [Suspect]
     Indication: HYPERTENSION
     Dosage: 20MG TWICE PER DAY
     Route: 048
     Dates: start: 20051021, end: 20051031
  6. CARDENALIN [Suspect]
     Indication: HYPERTENSION
     Dosage: 4MG TWICE PER DAY
     Route: 048
     Dates: start: 20051021, end: 20051031
  7. HERBESSER [Suspect]
     Indication: HYPERTENSION
     Route: 042
     Dates: start: 20051031, end: 20051031

REACTIONS (8)
  - CARDIAC ARREST [None]
  - COMA [None]
  - DEPRESSED LEVEL OF CONSCIOUSNESS [None]
  - ERYTHEMA [None]
  - HYPONATRAEMIA [None]
  - INFUSION SITE PAIN [None]
  - OEDEMA PERIPHERAL [None]
  - PHLEBITIS [None]
